FAERS Safety Report 15841347 (Version 2)
Quarter: 2019Q1

REPORT INFORMATION
  Report Type: Spontaneous
  Country: IT (occurrence: IT)
  Receive Date: 20190118
  Receipt Date: 20190201
  Transmission Date: 20190417
  Serious: Yes (Other)
  Sender: FDA-Public Use
  Company Number: IT-ASTRAZENECA-2019SE05421

PATIENT
  Age: 71 Year
  Sex: Female

DRUGS (7)
  1. OSIMERTINIB. [Suspect]
     Active Substance: OSIMERTINIB
     Indication: NON-SMALL CELL LUNG CANCER STAGE IV
     Route: 048
     Dates: start: 20170328, end: 20180226
  2. GEFITINIB. [Suspect]
     Active Substance: GEFITINIB
     Indication: NON-SMALL CELL LUNG CANCER STAGE IV
     Route: 048
  3. AMITRIPTYLINE [Concomitant]
     Active Substance: AMITRIPTYLINE
  4. BISOPROLOL [Concomitant]
     Active Substance: BISOPROLOL
  5. PERINDOPRIL [Concomitant]
     Active Substance: PERINDOPRIL
  6. FUROSEMIDE. [Concomitant]
     Active Substance: FUROSEMIDE
  7. OSIMERTINIB. [Suspect]
     Active Substance: OSIMERTINIB
     Indication: NON-SMALL CELL LUNG CANCER STAGE IV
     Route: 048
     Dates: start: 20180319

REACTIONS (3)
  - EGFR gene mutation [Unknown]
  - Malignant neoplasm progression [Unknown]
  - Left ventricular dysfunction [Recovered/Resolved]

NARRATIVE: CASE EVENT DATE: 20180227
